FAERS Safety Report 4783023-2 (Version None)
Quarter: 2005Q3

REPORT INFORMATION
  Report Type: 
  Country: None (occurrence: None)
  Receive Date: 20050929
  Receipt Date: 20050922
  Transmission Date: 20060218
  Serious: Yes (Disabling)
  Sender: FDA-Public Use
  Company Number: 200512157DE

PATIENT
  Age: 48 Year
  Sex: Male

DRUGS (2)
  1. APIDRA [Suspect]
     Indication: DIABETES MELLITUS INSULIN-DEPENDENT
     Route: 058
     Dates: start: 20050615
  2. ANTISEPTICS AND DISINFECTANTS [Concomitant]
     Indication: INFECTION
     Route: 061
     Dates: start: 19950101

REACTIONS (1)
  - INJECTION SITE IRRITATION [None]
